FAERS Safety Report 4421977-4 (Version None)
Quarter: 2004Q3

REPORT INFORMATION
  Report Type: 
  Country: None (occurrence: None)
  Receive Date: 20040804
  Receipt Date: 20040720
  Transmission Date: 20050211
  Serious: Yes (Death)
  Sender: FDA-Public Use
  Company Number: 2004-DE-03998GD

PATIENT
  Age: 57 Year
  Sex: Female

DRUGS (4)
  1. METHOTREXATE [Suspect]
     Indication: RHEUMATOID ARTHRITIS
     Dosage: 15 MG PER WEEK
  2. PREDNISONE [Suspect]
     Indication: RHEUMATOID ARTHRITIS
     Dosage: 3 TO 10 MG
  3. LEFLUNOMIDE [Suspect]
     Indication: RHEUMATOID ARTHRITIS
     Dosage: 20 MG
  4. INFLIXIMAB (INFLIXIMAB) [Suspect]
     Indication: RHEUMATOID ARTHRITIS
     Dosage: 5 MG/KG WITHIN THE MONTH BEFORE

REACTIONS (13)
  - ACTIVITIES OF DAILY LIVING IMPAIRED [None]
  - ANTIBODY TEST ABNORMAL [None]
  - ARTHRALGIA [None]
  - BEDRIDDEN [None]
  - CEREBRAL INFARCTION [None]
  - CEREBRAL ISCHAEMIA [None]
  - FATIGUE [None]
  - HEPATIC ENZYME INCREASED [None]
  - LUNG INFILTRATION [None]
  - MICROSPORIDIA INFECTION [None]
  - MUSCLE NECROSIS [None]
  - MYOSITIS [None]
  - RESPIRATORY FAILURE [None]
